FAERS Safety Report 5006991-2 (Version None)
Quarter: 2006Q2

REPORT INFORMATION
  Report Type: 
  Country: None (occurrence: None)
  Receive Date: 20060517
  Receipt Date: 20060511
  Transmission Date: 20061013
  Serious: Yes (Hospitalization)
  Sender: FDA-Public Use
  Company Number: GXKR2006DE01876

PATIENT
  Sex: Female

DRUGS (6)
  1. PARACETAMOL (NGX) (PARACETAMOL) TABLET, 500MG [Suspect]
     Indication: NASOPHARYNGITIS
     Dosage: 500 MG, ORAL
     Route: 048
     Dates: start: 20060201
  2. CLARITHROMYCIN [Suspect]
     Dosage: ORAL
     Route: 048
  3. DOLORMIN (IBUPROFEN SODIUM) [Suspect]
     Dosage: ORAL
     Route: 048
  4. INFLUVAC (INFLUENZA VIRUS VACCINE POLYVALENT) [Suspect]
  5. PNEUMOVAX 23 [Suspect]
  6. MICROGYNON (ETHINYLESTRADIOL, LEVONORGESTREL) [Concomitant]

REACTIONS (5)
  - AUTOIMMUNE THROMBOCYTOPENIA [None]
  - ERYTHEMA [None]
  - HAEMATOMA [None]
  - INJURY [None]
  - NASOPHARYNGITIS [None]
